FAERS Safety Report 5893132-2 (Version None)
Quarter: 2008Q3

REPORT INFORMATION
  Report Type: 
  Country: None (occurrence: None)
  Receive Date: 20080923
  Receipt Date: 20070817
  Transmission Date: 20090109
  Serious: No
  Sender: FDA-Public Use
  Company Number: US-ASTRAZENECA-2007UW19877

PATIENT
  Sex: Female

DRUGS (3)
  1. SEROQUEL [Suspect]
     Indication: PANIC ATTACK
     Route: 048
  2. SEROQUEL [Suspect]
     Indication: ANXIETY
     Route: 048
  3. XANAX [Concomitant]

REACTIONS (2)
  - FEELING ABNORMAL [None]
  - SOMNOLENCE [None]
